APPROVED DRUG PRODUCT: PALIPERIDONE
Active Ingredient: PALIPERIDONE
Strength: 1.5MG
Dosage Form/Route: TABLET, EXTENDED RELEASE;ORAL
Application: A218330 | Product #001 | TE Code: AB
Applicant: ALEMBIC PHARMACEUTICALS LTD
Approved: Sep 26, 2024 | RLD: No | RS: No | Type: RX